FAERS Safety Report 5814528-0 (Version None)
Quarter: 2008Q3

REPORT INFORMATION
  Report Type: 
  Country: None (occurrence: None)
  Receive Date: 20080718
  Receipt Date: 20070621
  Transmission Date: 20090109
  Serious: No
  Sender: FDA-Public Use
  Company Number: US-KINGPHARMUSA00001-K200700778

PATIENT

DRUGS (5)
  1. LEVOXYL [Suspect]
     Indication: HYPOTHYROIDISM
     Dosage: 150 MCG, QD
     Route: 048
  2. LEVOXYL [Suspect]
     Dosage: 75 MCG, QD
     Route: 048
     Dates: end: 20060101
  3. LEVOXYL [Suspect]
     Dosage: 125 MCG, QD
     Route: 048
     Dates: start: 20060101
  4. LEVOXYL [Suspect]
     Dosage: 200 MCG, QD
     Route: 048
     Dates: start: 20070301
  5. PRILOSEC [Concomitant]
     Route: 048

REACTIONS (11)
  - CONFUSIONAL STATE [None]
  - DISTURBANCE IN ATTENTION [None]
  - DYSPNOEA [None]
  - HEART RATE INCREASED [None]
  - HEART RATE IRREGULAR [None]
  - HEAT STROKE [None]
  - HYPERSOMNIA [None]
  - IRRITABILITY [None]
  - LETHARGY [None]
  - MALAISE [None]
  - PALPITATIONS [None]
